FAERS Safety Report 12807981 (Version 1)
Quarter: 2016Q4

REPORT INFORMATION
  Report Type: Spontaneous
  Country: FR (occurrence: FR)
  Receive Date: 20161004
  Receipt Date: 20161004
  Transmission Date: 20170207
  Serious: Yes (Hospitalization)
  Sender: FDA-Public Use
  Company Number: FR-B. BRAUN MEDICAL INC.-1057957

PATIENT
  Age: 3 Year
  Sex: Female

DRUGS (4)
  1. CALCIUM GLUCONATE. [Suspect]
     Active Substance: CALCIUM GLUCONATE
     Route: 042
     Dates: start: 20160131, end: 20160201
  2. SODIUM CHLORIDE. [Suspect]
     Active Substance: SODIUM CHLORIDE
     Route: 042
     Dates: start: 20160131, end: 20160201
  3. POTASSIUM CHLORIDE FOR INJECTION CONCENTRATE USP 0264-1940-20 [Suspect]
     Active Substance: POTASSIUM CHLORIDE
     Route: 042
     Dates: start: 20160131, end: 20160201
  4. GLUCOSE 10% [Suspect]
     Active Substance: DEXTROSE
     Route: 042
     Dates: start: 20160131, end: 20160201

REACTIONS (2)
  - Necrosis [Recovered/Resolved with Sequelae]
  - Chemical burn of skin [Recovered/Resolved with Sequelae]

NARRATIVE: CASE EVENT DATE: 20160201
